FAERS Safety Report 12318301 (Version 7)
Quarter: 2016Q3

REPORT INFORMATION
  Report Type: Spontaneous
  Country: KR (occurrence: KR)
  Receive Date: 20160429
  Receipt Date: 20160722
  Transmission Date: 20161109
  Serious: Yes (Hospitalization)
  Sender: FDA-Public Use
  Company Number: KR-009507513-1603KOR006482

PATIENT
  Age: 52 Year
  Sex: Male
  Weight: 77.4 kg

DRUGS (66)
  1. EMEND (FOSAPREPITANT DIMEGLUMINE) [Suspect]
     Active Substance: FOSAPREPITANT DIMEGLUMINE
     Indication: PROPHYLAXIS OF NAUSEA AND VOMITING
     Dosage: 150 MG, ONCE
     Route: 042
     Dates: start: 20160224, end: 20160224
  2. ENDOXAN [Concomitant]
     Active Substance: CYCLOPHOSPHAMIDE
     Indication: DIFFUSE LARGE B-CELL LYMPHOMA
     Dosage: 1418 MG, ONCE, CYCLE 1
     Route: 042
     Dates: start: 20160224, end: 20160224
  3. ENDOXAN [Concomitant]
     Active Substance: CYCLOPHOSPHAMIDE
     Dosage: 1409 MG, ONCE, CYCLE 2
     Route: 042
     Dates: start: 20160316, end: 20160316
  4. ADRIAMYCIN [Concomitant]
     Active Substance: DOXORUBICIN HYDROCHLORIDE
     Dosage: 94.5 MG, ONCE, CYCLE 3
     Route: 042
     Dates: start: 20160406, end: 20160406
  5. MABTHERA [Concomitant]
     Active Substance: RITUXIMAB
     Dosage: 720 MG, ONCE, CYCLE 4
     Route: 042
     Dates: start: 20160503, end: 20160503
  6. SOLONDO [Concomitant]
     Active Substance: PREDNISOLONE
     Dosage: 30 MG, BID
     Route: 048
     Dates: start: 20160406, end: 20160410
  7. ALOXI [Concomitant]
     Active Substance: PALONOSETRON HYDROCHLORIDE
     Dosage: 0.25 MG, ONCE
     Route: 042
     Dates: start: 20160614, end: 20160614
  8. CARDIOXANE [Concomitant]
     Active Substance: DEXRAZOXANE HYDROCHLORIDE
     Dosage: 945 MG, ONCE
     Route: 042
     Dates: start: 20160406, end: 20160406
  9. SEPTRIN [Concomitant]
     Active Substance: SULFAMETHOXAZOLE\TRIMETHOPRIM
     Dosage: 1 TABLET, BID
     Route: 048
     Dates: start: 20160316, end: 20160322
  10. SEPTRIN [Concomitant]
     Active Substance: SULFAMETHOXAZOLE\TRIMETHOPRIM
     Dosage: 1 TABLET, BID
     Route: 048
     Dates: start: 20160524
  11. SEPTRIN [Concomitant]
     Active Substance: SULFAMETHOXAZOLE\TRIMETHOPRIM
     Dosage: 1 TABLET, BID
     Route: 048
     Dates: start: 20160614
  12. ENDOXAN [Concomitant]
     Active Substance: CYCLOPHOSPHAMIDE
     Dosage: 1417 MG, ONCE, CYCLE 3
     Route: 042
     Dates: start: 20160406, end: 20160406
  13. ADRIAMYCIN [Concomitant]
     Active Substance: DOXORUBICIN HYDROCHLORIDE
     Dosage: 93.9 MG, ONCE, CYCLE 2
     Route: 042
     Dates: start: 20160316, end: 20160316
  14. SOLONDO [Concomitant]
     Active Substance: PREDNISOLONE
     Dosage: 30 MG, BID
     Route: 048
     Dates: start: 20160316, end: 20160320
  15. ALOXI [Concomitant]
     Active Substance: PALONOSETRON HYDROCHLORIDE
     Dosage: 0.25 MG, ONCE
     Route: 042
     Dates: start: 20160406, end: 20160406
  16. CARDIOXANE [Concomitant]
     Active Substance: DEXRAZOXANE HYDROCHLORIDE
     Dosage: 939 MG, ONCE
     Route: 042
     Dates: start: 20160316, end: 20160316
  17. ENDOXAN [Concomitant]
     Active Substance: CYCLOPHOSPHAMIDE
     Dosage: 1440 MG, ONCE, CYCLE 4
     Route: 042
     Dates: start: 20160503, end: 20160503
  18. ENDOXAN [Concomitant]
     Active Substance: CYCLOPHOSPHAMIDE
     Dosage: 1424.9 MG, ONCE, CYCLE 6
     Route: 042
     Dates: start: 20160614, end: 20160614
  19. ADRIAMYCIN [Concomitant]
     Active Substance: DOXORUBICIN HYDROCHLORIDE
     Indication: DIFFUSE LARGE B-CELL LYMPHOMA
     Dosage: 95 MG, ONCE, CYCLE 1
     Route: 042
     Dates: start: 20160224, end: 20160224
  20. ADRIAMYCIN [Concomitant]
     Active Substance: DOXORUBICIN HYDROCHLORIDE
     Dosage: 94.9 MG, ONCE, CYCLE 6
     Route: 042
     Dates: start: 20160614, end: 20160614
  21. VINCRISTINE SULFATE. [Concomitant]
     Active Substance: VINCRISTINE SULFATE
     Dosage: 2 MG, ONCE, CYCLE 3
     Route: 042
     Dates: start: 20160406, end: 20160406
  22. VINCRISTINE SULFATE. [Concomitant]
     Active Substance: VINCRISTINE SULFATE
     Dosage: 2 MG, ONCE, CYCLE 5
     Route: 042
     Dates: start: 20160524, end: 20160524
  23. VINCRISTINE SULFATE. [Concomitant]
     Active Substance: VINCRISTINE SULFATE
     Dosage: 2 MG, ONCE, CYCLE 6
     Route: 042
     Dates: start: 20160614, end: 20160614
  24. MABTHERA [Concomitant]
     Active Substance: RITUXIMAB
     Dosage: 708.7 MG, ONCE, CYCLE 3
     Route: 042
     Dates: start: 20160406, end: 20160406
  25. SOLONDO [Concomitant]
     Active Substance: PREDNISOLONE
     Dosage: 40 MG, QD
     Route: 048
     Dates: start: 20160406, end: 20160410
  26. SOLONDO [Concomitant]
     Active Substance: PREDNISOLONE
     Dosage: 30 MG, BID
     Route: 048
     Dates: start: 20160503
  27. SOLONDO [Concomitant]
     Active Substance: PREDNISOLONE
     Dosage: 40 MG, QD
     Route: 048
     Dates: start: 20160503
  28. ALOXI [Concomitant]
     Active Substance: PALONOSETRON HYDROCHLORIDE
     Dosage: 0.25 MG, ONCE
     Route: 042
     Dates: start: 20160316, end: 20160316
  29. ENDOXAN [Concomitant]
     Active Substance: CYCLOPHOSPHAMIDE
     Dosage: 1424.9 MG, ONCE, CYCLE 5
     Route: 042
     Dates: start: 20160524, end: 20160524
  30. ADRIAMYCIN [Concomitant]
     Active Substance: DOXORUBICIN HYDROCHLORIDE
     Dosage: 94.9 MG, ONCE, CYCLE 5
     Route: 042
     Dates: start: 20160524, end: 20160524
  31. SOLONDO [Concomitant]
     Active Substance: PREDNISOLONE
     Dosage: 40 MG, QD
     Route: 048
     Dates: start: 20160520
  32. SOLONDO [Concomitant]
     Active Substance: PREDNISOLONE
     Dosage: 30 MG, BID
     Route: 048
     Dates: start: 20160524
  33. ALOXI [Concomitant]
     Active Substance: PALONOSETRON HYDROCHLORIDE
     Indication: PROPHYLAXIS OF NAUSEA AND VOMITING
     Dosage: 0.25 MG, ONCE
     Route: 042
     Dates: start: 20160224, end: 20160224
  34. ALOXI [Concomitant]
     Active Substance: PALONOSETRON HYDROCHLORIDE
     Dosage: 0.25 MG, ONCE
     Route: 042
     Dates: start: 20160524, end: 20160524
  35. CARDIOXANE [Concomitant]
     Active Substance: DEXRAZOXANE HYDROCHLORIDE
     Indication: PROPHYLAXIS
     Dosage: 950 MG, ONCE
     Route: 042
     Dates: start: 20160224, end: 20160224
  36. SEPTRIN [Concomitant]
     Active Substance: SULFAMETHOXAZOLE\TRIMETHOPRIM
     Dosage: 1 TABLET, BID
     Route: 048
     Dates: start: 20160503, end: 20160509
  37. CRAVIT [Concomitant]
     Active Substance: LEVOFLOXACIN
     Dosage: 500 MG, QD
     Route: 048
     Dates: start: 20160316, end: 20160325
  38. CRAVIT [Concomitant]
     Active Substance: LEVOFLOXACIN
     Dosage: 500 MG, QD
     Route: 048
     Dates: start: 20160406, end: 20160415
  39. EMEND (FOSAPREPITANT DIMEGLUMINE) [Suspect]
     Active Substance: FOSAPREPITANT DIMEGLUMINE
     Dosage: 150 MG, ONCE
     Route: 042
     Dates: start: 20160406, end: 20160406
  40. VINCRISTINE SULFATE. [Concomitant]
     Active Substance: VINCRISTINE SULFATE
     Indication: DIFFUSE LARGE B-CELL LYMPHOMA
     Dosage: (STRENGTH: 1 MG/ML, 2 ML), 2 MG, ONCE, CYCLE 1
     Route: 042
     Dates: start: 20160224, end: 20160224
  41. MABTHERA [Concomitant]
     Active Substance: RITUXIMAB
     Dosage: 712.4 MG, ONCE, CYCLE 6
     Route: 042
     Dates: start: 20160614, end: 20160614
  42. SOLONDO [Concomitant]
     Active Substance: PREDNISOLONE
     Indication: PROPHYLAXIS OF NAUSEA AND VOMITING
     Dosage: 40 MG, QD
     Route: 048
     Dates: start: 20160224, end: 20160228
  43. SOLONDO [Concomitant]
     Active Substance: PREDNISOLONE
     Dosage: 40 MG, QD
     Route: 048
     Dates: start: 20160614
  44. SOLONDO [Concomitant]
     Active Substance: PREDNISOLONE
     Dosage: 30 MG, BID
     Route: 048
     Dates: start: 20160614
  45. ALOXI [Concomitant]
     Active Substance: PALONOSETRON HYDROCHLORIDE
     Dosage: 0.25 MG, ONCE
     Route: 042
     Dates: start: 20160503, end: 20160503
  46. CARDIOXANE [Concomitant]
     Active Substance: DEXRAZOXANE HYDROCHLORIDE
     Dosage: 960 MG, ONCE
     Route: 042
     Dates: start: 20160503, end: 20160503
  47. CARDIOXANE [Concomitant]
     Active Substance: DEXRAZOXANE HYDROCHLORIDE
     Dosage: 949 MG, ONCE
     Route: 042
     Dates: start: 20160524, end: 20160524
  48. SEPTRIN [Concomitant]
     Active Substance: SULFAMETHOXAZOLE\TRIMETHOPRIM
     Indication: INFECTION PROPHYLAXIS
     Dosage: 1 TABLET, BID
     Route: 048
     Dates: start: 20160224, end: 20160301
  49. SEPTRIN [Concomitant]
     Active Substance: SULFAMETHOXAZOLE\TRIMETHOPRIM
     Dosage: 2 TABLETS, BID
     Route: 048
     Dates: start: 20160406, end: 20160412
  50. CRAVIT [Concomitant]
     Active Substance: LEVOFLOXACIN
     Dosage: 500 MG, QD
     Route: 048
     Dates: start: 20160503, end: 20160512
  51. TENOFOVIR [Concomitant]
     Active Substance: TENOFOVIR
     Indication: VIRAL HEPATITIS CARRIER
     Dosage: UNK
     Dates: start: 20160223
  52. EMEND (FOSAPREPITANT DIMEGLUMINE) [Suspect]
     Active Substance: FOSAPREPITANT DIMEGLUMINE
     Dosage: 150 MG, ONCE
     Route: 042
     Dates: start: 20160316, end: 20160316
  53. EMEND (FOSAPREPITANT DIMEGLUMINE) [Suspect]
     Active Substance: FOSAPREPITANT DIMEGLUMINE
     Dosage: 150 MG, ONCE
     Route: 042
     Dates: start: 20160614, end: 20160614
  54. ADRIAMYCIN [Concomitant]
     Active Substance: DOXORUBICIN HYDROCHLORIDE
     Dosage: 96 MG, ONCE, CYCLE 4
     Route: 042
     Dates: start: 20160503, end: 20160503
  55. VINCRISTINE SULFATE. [Concomitant]
     Active Substance: VINCRISTINE SULFATE
     Dosage: 2 MG, ONCE, CYCLE 2
     Route: 042
     Dates: start: 20160316, end: 20160316
  56. SOLONDO [Concomitant]
     Active Substance: PREDNISOLONE
     Dosage: 30 MG, BID
     Route: 048
     Dates: start: 20160224, end: 20160228
  57. SOLONDO [Concomitant]
     Active Substance: PREDNISOLONE
     Dosage: 40 MG, QD
     Route: 048
     Dates: start: 20160316, end: 20160320
  58. STRIBILD [Concomitant]
     Active Substance: COBICISTAT\ELVITEGRAVIR\EMTRICITABINE\TENOFOVIR DISOPROXIL FUMARATE
     Indication: VIRAL HEPATITIS CARRIER
     Dosage: 300 MG, QD
     Route: 048
     Dates: start: 20160223
  59. CRAVIT [Concomitant]
     Active Substance: LEVOFLOXACIN
     Indication: INFECTION PROPHYLAXIS
     Dosage: 500 MG, QD
     Route: 048
     Dates: start: 20160224, end: 20160304
  60. EMEND (FOSAPREPITANT DIMEGLUMINE) [Suspect]
     Active Substance: FOSAPREPITANT DIMEGLUMINE
     Dosage: 150 MG, ONCE
     Route: 042
     Dates: start: 20160503, end: 20160503
  61. EMEND (FOSAPREPITANT DIMEGLUMINE) [Suspect]
     Active Substance: FOSAPREPITANT DIMEGLUMINE
     Dosage: 150 MG, ONCE
     Route: 042
     Dates: start: 20160524, end: 20160524
  62. VINCRISTINE SULFATE. [Concomitant]
     Active Substance: VINCRISTINE SULFATE
     Dosage: 2 MG, ONCE, CYCLE 4
     Route: 042
     Dates: start: 20160503, end: 20160503
  63. MABTHERA [Concomitant]
     Active Substance: RITUXIMAB
     Indication: DIFFUSE LARGE B-CELL LYMPHOMA
     Dosage: 708 MG, ONCE, CYCLE 1
     Route: 042
     Dates: start: 20160224, end: 20160224
  64. MABTHERA [Concomitant]
     Active Substance: RITUXIMAB
     Dosage: 705 MG, ONCE, CYCLE 2
     Route: 042
     Dates: start: 20160316, end: 20160316
  65. MABTHERA [Concomitant]
     Active Substance: RITUXIMAB
     Dosage: 712.4 MG, ONCE, CYCLE 5
     Route: 042
     Dates: start: 20160524, end: 20160524
  66. CARDIOXANE [Concomitant]
     Active Substance: DEXRAZOXANE HYDROCHLORIDE
     Dosage: 949 MG, ONCE
     Route: 042
     Dates: start: 20160614, end: 20160614

REACTIONS (8)
  - Herpes zoster [Recovered/Resolved]
  - Pruritus [Recovered/Resolved]
  - Nausea [Recovered/Resolved]
  - Flank pain [Recovered/Resolved]
  - Neutrophil count decreased [Recovered/Resolved]
  - Neutrophil count decreased [Recovered/Resolved]
  - Nausea [Recovered/Resolved]
  - Neutrophil count decreased [Recovered/Resolved]

NARRATIVE: CASE EVENT DATE: 20160301
